FAERS Safety Report 9409593 (Version 1)
Quarter: 2013Q3

REPORT INFORMATION
  Report Type: Spontaneous
  Country: GB (occurrence: GB)
  Receive Date: 20130719
  Receipt Date: 20130719
  Transmission Date: 20140515
  Serious: Yes (Other)
  Sender: FDA-Public Use
  Company Number: PHFR2013GB004055

PATIENT
  Sex: Male
  Weight: 115 kg

DRUGS (3)
  1. CLOZARIL [Suspect]
     Indication: SCHIZOPHRENIA
     Dosage: 475 MG, UNK
     Route: 048
  2. CITALOPRAM [Concomitant]
     Indication: DEPRESSION
     Dosage: 40 MG, UNK
     Route: 048
  3. LORAZEPAM [Concomitant]
     Dosage: 1-4 MG PRN
     Route: 048

REACTIONS (2)
  - Diabetes mellitus [Recovering/Resolving]
  - Weight decreased [Unknown]
